FAERS Safety Report 23687863 (Version 1)
Quarter: 2024Q1

REPORT INFORMATION
  Report Type: Spontaneous
  Country: US (occurrence: US)
  Receive Date: 20240329
  Receipt Date: 20240329
  Transmission Date: 20240409
  Serious: Yes (Other)
  Sender: FDA-Public Use
  Company Number: US-BRISTOL-MYERS SQUIBB COMPANY-2024-050274

PATIENT
  Age: 51 Year
  Sex: Male

DRUGS (4)
  1. NIVOLUMAB [Suspect]
     Active Substance: NIVOLUMAB
     Indication: Metastatic malignant melanoma
     Dosage: 16 DOSES
  2. IPILIMUMAB [Suspect]
     Active Substance: IPILIMUMAB
     Indication: Metastatic malignant melanoma
     Dosage: 16 DOSES
  3. TRAMETINIB [Concomitant]
     Active Substance: TRAMETINIB
     Indication: Metastatic malignant melanoma
  4. BINIMETINIB [Concomitant]
     Active Substance: BINIMETINIB
     Indication: Metastatic malignant melanoma

REACTIONS (2)
  - Immune-mediated enterocolitis [Unknown]
  - Immune-mediated arthritis [Unknown]
